FAERS Safety Report 15557115 (Version 3)
Quarter: 2018Q4

REPORT INFORMATION
  Report Type: Spontaneous
  Country: US (occurrence: US)
  Receive Date: 20181026
  Receipt Date: 20181228
  Transmission Date: 20190205
  Serious: Yes (Hospitalization, Other)
  Sender: FDA-Public Use
  Company Number: US-OTSUKA-2018_019412

PATIENT

DRUGS (2)
  1. ABILIFY [Suspect]
     Active Substance: ARIPIPRAZOLE
     Indication: SCHIZOPHRENIA
     Dosage: 20 MG, QD
     Route: 065
     Dates: start: 2005, end: 2011
  2. ABILIFY [Suspect]
     Active Substance: ARIPIPRAZOLE
     Indication: MAJOR DEPRESSION

REACTIONS (10)
  - Suicidal ideation [Not Recovered/Not Resolved]
  - Economic problem [Unknown]
  - Mental disorder [Unknown]
  - Suicide attempt [Not Recovered/Not Resolved]
  - Obsessive-compulsive disorder [Unknown]
  - Homeless [Unknown]
  - Compulsive shopping [Not Recovered/Not Resolved]
  - Gambling disorder [Not Recovered/Not Resolved]
  - Weight increased [Unknown]
  - Bankruptcy [Unknown]

NARRATIVE: CASE EVENT DATE: 2012
